FAERS Safety Report 9288304 (Version 2)
Quarter: 2013Q2

REPORT INFORMATION
  Report Type: Spontaneous
  Country: US (occurrence: US)
  Receive Date: 20130514
  Receipt Date: 20130618
  Transmission Date: 20140414
  Serious: Yes (Hospitalization, Disabling)
  Sender: FDA-Public Use
  Company Number: US-ELI_LILLY_AND_COMPANY-US201305000879

PATIENT
  Age: 51 Year
  Sex: Male

DRUGS (7)
  1. CYMBALTA [Suspect]
     Indication: DEPRESSION
     Dosage: 120 MG, QD
  2. CYMBALTA [Suspect]
     Dosage: 60 MG, QD
     Dates: start: 20130329
  3. TRAMADOL [Concomitant]
  4. MINIPRESS [Concomitant]
  5. WELLBUTRIN [Concomitant]
  6. ATIVAN [Concomitant]
  7. PRILOSEC [Concomitant]

REACTIONS (8)
  - Paralysis [Recovering/Resolving]
  - Malaise [Unknown]
  - Asthenia [Unknown]
  - Gait disturbance [Unknown]
  - Drug withdrawal syndrome [Unknown]
  - Pruritus [Unknown]
  - Malaise [Unknown]
  - Insomnia [Unknown]
